FAERS Safety Report 5569398-5 (Version None)
Quarter: 2007Q4

REPORT INFORMATION
  Report Type: 
  Country: None (occurrence: None)
  Receive Date: 20071220
  Receipt Date: 20071219
  Transmission Date: 20080405
  Serious: Yes (Hospitalization)
  Sender: FDA-Public Use
  Company Number: FR-WYE-G00807707

PATIENT
  Sex: Male

DRUGS (6)
  1. TAZOCILLINE [Suspect]
     Indication: INFLAMMATION
     Dosage: UNKNOWN
     Route: 042
     Dates: start: 20070217, end: 20070218
  2. TAZOCILLINE [Suspect]
     Indication: RALES
  3. TAZOCILLINE [Suspect]
     Indication: PYREXIA
  4. AMIKLIN [Suspect]
     Indication: INFLAMMATION
     Dosage: UNKNOWN
     Route: 042
     Dates: start: 20070217, end: 20070218
  5. AMIKLIN [Suspect]
     Indication: RALES
  6. AMIKLIN [Suspect]
     Indication: PYREXIA

REACTIONS (1)
  - DERMATITIS ALLERGIC [None]
